FAERS Safety Report 6779250-5 (Version None)
Quarter: 2010Q2

REPORT INFORMATION
  Report Type: 
  Country: None (occurrence: None)
  Receive Date: 20100618
  Receipt Date: 20100615
  Transmission Date: 20101027
  Serious: Yes (Other)
  Sender: FDA-Public Use
  Company Number: IT-ROCHE-706623

PATIENT
  Sex: Male
  Weight: 80 kg

DRUGS (12)
  1. BLINDED TOCILIZUMAB [Suspect]
     Indication: RHEUMATOID ARTHRITIS
     Dosage: DOSE BLINDED
     Route: 042
  2. TOCILIZUMAB [Suspect]
     Indication: RHEUMATOID ARTHRITIS
     Dosage: DOSAGE FORM REPORTED AS INFUSION.
     Route: 042
     Dates: start: 20051121, end: 20080728
  3. TOCILIZUMAB [Suspect]
     Dosage: PERMANENTLY DISCONTINUED
     Route: 042
     Dates: start: 20081125, end: 20100511
  4. METHOTREXATE [Concomitant]
     Dosage: AS PER PROTOCOL ORAL OR PARENTERAL METHOTREXATE IS GIVEN.
     Route: 048
     Dates: start: 20030429, end: 20080725
  5. METHOTREXATE [Concomitant]
     Route: 048
     Dates: start: 20081020
  6. PREDNISONE [Concomitant]
     Dates: start: 20030101
  7. NIMESULIDE [Concomitant]
     Dates: start: 20050119
  8. FOLIC ACID [Concomitant]
     Dates: start: 20030429, end: 20080725
  9. FOLIC ACID [Concomitant]
     Dates: start: 20081020
  10. QUINAZIDE [Concomitant]
     Dates: start: 20030101
  11. CASODEX [Concomitant]
     Dates: start: 20100505
  12. LEUPROLIDE ACETATE [Concomitant]
     Dates: start: 20100520

REACTIONS (1)
  - PROSTATE CANCER [None]
